FAERS Safety Report 12828026 (Version 1)
Quarter: 2016Q4

REPORT INFORMATION
  Report Type: Spontaneous
  Country: US (occurrence: US)
  Receive Date: 20161007
  Receipt Date: 20161007
  Transmission Date: 20170207
  Serious: Yes (Other)
  Sender: FDA-Public Use
  Company Number: ALCN2016US006786

PATIENT

DRUGS (3)
  1. DUREZOL [Suspect]
     Active Substance: DIFLUPREDNATE
     Dosage: 1 GTT, QID
     Route: 047
  2. DUREZOL [Suspect]
     Active Substance: DIFLUPREDNATE
     Dosage: TAPERING
     Route: 047
  3. DUREZOL [Suspect]
     Active Substance: DIFLUPREDNATE
     Indication: EYE INFLAMMATION
     Dosage: 1 GTT, ONCE/SINGLE
     Route: 047

REACTIONS (1)
  - Cataract cortical [Recovered/Resolved]
